FAERS Safety Report 26101920 (Version 1)
Quarter: 2025Q4

REPORT INFORMATION
  Report Type: Spontaneous
  Country: CN (occurrence: CN)
  Receive Date: 20251128
  Receipt Date: 20251128
  Transmission Date: 20260117
  Serious: Yes (Other)
  Sender: ABBVIE
  Company Number: CN-ABBVIE-6566613

PATIENT
  Age: 14 Year
  Sex: Male
  Weight: 44 kg

DRUGS (3)
  1. VENETOCLAX [Suspect]
     Active Substance: VENETOCLAX
     Indication: Chemotherapy
     Route: 048
     Dates: start: 20251023, end: 20251105
  2. OMACETAXINE MEPESUCCINATE [Suspect]
     Active Substance: OMACETAXINE MEPESUCCINATE
     Indication: Chemotherapy
     Dosage: INTRAVENOUS DRIP
     Route: 042
     Dates: start: 20251023, end: 20251029
  3. CYTARABINE [Suspect]
     Active Substance: CYTARABINE
     Indication: Chemotherapy
     Dosage: INTRAVENOUS DRIP
     Route: 042
     Dates: start: 20251023, end: 20251101

REACTIONS (1)
  - Myelosuppression [Not Recovered/Not Resolved]

NARRATIVE: CASE EVENT DATE: 20251031
